FAERS Safety Report 16044681 (Version 4)
Quarter: 2021Q4

REPORT INFORMATION
  Report Type: Report from Study
  Country: BR (occurrence: BR)
  Receive Date: 20190306
  Receipt Date: 20211209
  Transmission Date: 20220303
  Serious: No
  Sender: FDA-Public Use
  Company Number: BR-BIOGEN-2019BI00704651

PATIENT
  Sex: Female

DRUGS (2)
  1. AVONEX PEN [Suspect]
     Active Substance: INTERFERON BETA-1A
     Indication: Secondary progressive multiple sclerosis
     Route: 030
  2. AVONEX PEN [Suspect]
     Active Substance: INTERFERON BETA-1A
     Route: 030

REACTIONS (4)
  - Prescribed overdose [Not Recovered/Not Resolved]
  - Off label use [Not Recovered/Not Resolved]
  - Alopecia [Unknown]
  - Multiple sclerosis relapse [Recovered/Resolved with Sequelae]
